FAERS Safety Report 11422628 (Version 1)
Quarter: 2015Q3

REPORT INFORMATION
  Report Type: Report from Study
  Country: US (occurrence: US)
  Receive Date: 20150827
  Receipt Date: 20150827
  Transmission Date: 20151125
  Serious: Yes (Death, Hospitalization, Other)
  Sender: FDA-Public Use
  Company Number: US-ASTELLAS-2015US023500

PATIENT
  Age: 66 Year
  Sex: Male

DRUGS (11)
  1. AVASTIN [Suspect]
     Active Substance: BEVACIZUMAB
     Indication: PANCREATIC CARCINOMA
  2. ERLOTINIB [Suspect]
     Active Substance: ERLOTINIB
     Indication: METASTASES TO BONE
     Route: 048
  3. AVASTIN [Suspect]
     Active Substance: BEVACIZUMAB
     Indication: RENAL CANCER
     Route: 042
     Dates: start: 20041214
  4. AVASTIN [Suspect]
     Active Substance: BEVACIZUMAB
     Indication: MALIGNANT URINARY TRACT NEOPLASM
     Route: 042
     Dates: start: 20050125
  5. XELODA [Suspect]
     Active Substance: CAPECITABINE
     Indication: RENAL CANCER
     Dosage: UNK, UNKNOWN FREQ.
     Route: 065
  6. LISINOPRIL. [Concomitant]
     Active Substance: LISINOPRIL
     Indication: PRODUCT USED FOR UNKNOWN INDICATION
     Dosage: UNK UNK, UNKNOWN FREQ.
     Route: 048
  7. GEMZAR [Concomitant]
     Active Substance: GEMCITABINE HYDROCHLORIDE
     Indication: MALIGNANT URINARY TRACT NEOPLASM
  8. SORAFENIB [Concomitant]
     Active Substance: SORAFENIB
     Indication: PRODUCT USED FOR UNKNOWN INDICATION
     Dosage: UNK UNK, UNKNOWN FREQ.
     Route: 065
  9. GEMZAR [Concomitant]
     Active Substance: GEMCITABINE HYDROCHLORIDE
     Indication: RENAL CANCER
     Dosage: UNK UNK, UNKNOWN FREQ.
     Route: 065
  10. XELODA [Suspect]
     Active Substance: CAPECITABINE
     Indication: MALIGNANT URINARY TRACT NEOPLASM
  11. ZOMETA [Concomitant]
     Active Substance: ZOLEDRONIC ACID
     Indication: PRODUCT USED FOR UNKNOWN INDICATION
     Dosage: 4 MG, CYCLIC, 1 IN 28 DAYS
     Route: 065

REACTIONS (19)
  - Heart rate decreased [Unknown]
  - Nausea [Unknown]
  - Vomiting [Unknown]
  - Protein urine present [Unknown]
  - Loss of consciousness [Unknown]
  - Asthenia [Unknown]
  - Stomatitis [Unknown]
  - Mucosal inflammation [Unknown]
  - Diarrhoea [Unknown]
  - Osteonecrosis [Unknown]
  - Underdose [Unknown]
  - Off label use [Unknown]
  - Malignant neoplasm progression [Unknown]
  - Fatigue [Unknown]
  - Pain [Unknown]
  - Constipation [Unknown]
  - Death [Fatal]
  - Rash [Unknown]
  - Decreased appetite [Unknown]

NARRATIVE: CASE EVENT DATE: 20041228
